FAERS Safety Report 6619360-6 (Version None)
Quarter: 2010Q1

REPORT INFORMATION
  Report Type: 
  Country: None (occurrence: None)
  Receive Date: 20100303
  Receipt Date: 20100215
  Transmission Date: 20100710
  Serious: Yes (Hospitalization, Other)
  Sender: FDA-Public Use
  Company Number: AUR-APL-2010-00566

PATIENT
  Age: 81 Year
  Sex: Female

DRUGS (8)
  1. SIMVASTATIN [Suspect]
     Dosage: 20MG, DAILY, ORAL
     Route: 048
     Dates: start: 20090701, end: 20091119
  2. ALDACTAZIDE [Suspect]
     Dosage: ORAL
     Route: 048
     Dates: start: 20091016, end: 20091119
  3. EFFEXOR XR [Suspect]
     Dosage: 37.5 - DAILY - ORAL
     Route: 048
     Dates: start: 20090701, end: 20091119
  4. FLECAINE PROLONGED-RELEASE TABLET [Suspect]
     Dosage: 50MG - BID - ORAL
     Route: 048
     Dates: start: 20090701, end: 20091119
  5. DISCOTRINE TRANSDERMAL PATCH [Suspect]
     Dosage: 1 DF - DAILY - TRANSDERMAL
     Route: 062
     Dates: start: 20090701, end: 20091119
  6. LEXOMIL (BROMAZEPAM) [Concomitant]
  7. SINTROM [Concomitant]
  8. NEXIUM [Concomitant]

REACTIONS (7)
  - BLADDER DILATATION [None]
  - CONFUSIONAL STATE [None]
  - DISORIENTATION [None]
  - ESCHERICHIA URINARY TRACT INFECTION [None]
  - FALL [None]
  - HYPOCHLORAEMIA [None]
  - HYPONATRAEMIA [None]
